FAERS Safety Report 5216646-7 (Version None)
Quarter: 2007Q1

REPORT INFORMATION
  Report Type: 
  Country: None (occurrence: None)
  Receive Date: 20061130
  Receipt Date: 20060626
  Transmission Date: 20070707
  Serious: Yes (Other)
  Sender: FDA-Public Use
  Company Number: US200606005576

PATIENT
  Age: 38 Year
  Sex: Male

DRUGS (2)
  1. ZYPREXA [Suspect]
     Indication: SCHIZOPHRENIA
     Dosage: 10 MG
  2. ASPIRIN [Concomitant]

REACTIONS (10)
  - ASTHENIA [None]
  - DIABETES MELLITUS [None]
  - HALLUCINATION, VISUAL [None]
  - HYPERGLYCAEMIA [None]
  - HYPOAESTHESIA [None]
  - PANCREATITIS [None]
  - SCHIZOPHRENIA [None]
  - TREMOR [None]
  - VOMITING [None]
  - WEIGHT INCREASED [None]
